FAERS Safety Report 6071816-3 (Version None)
Quarter: 2009Q1

REPORT INFORMATION
  Report Type: 
  Country: None (occurrence: None)
  Receive Date: 20090210
  Receipt Date: 20090202
  Transmission Date: 20090719
  Serious: Yes (Other)
  Sender: FDA-Public Use
  Company Number: PHEH2007US11285

PATIENT
  Sex: Female
  Weight: 69.388 kg

DRUGS (10)
  1. ZOMETA [Suspect]
     Indication: BREAST CANCER
     Dosage: UNK
     Dates: start: 20040101, end: 20060101
  2. ZITHROMAX [Concomitant]
     Dosage: 250 MG, UNK
     Dates: start: 20001101
  3. CELEBREX [Concomitant]
     Dosage: 200 MG, UNK
     Dates: start: 20011001
  4. IBUPROFEN TABLETS [Concomitant]
     Dosage: 800 MG, UNK
     Dates: start: 20030101
  5. XELODA [Concomitant]
     Dosage: 500 MG, UNK
     Dates: start: 20051201
  6. PENICILLIN VK [Concomitant]
     Dosage: 500 MG, UNK
     Dates: start: 20070801
  7. MEGESTROL ACETATE [Concomitant]
     Dosage: 40 MG/ML, UNK
     Dates: start: 20080401
  8. NYSTATIN [Concomitant]
     Dosage: 100000 U/ML, UNK
     Dates: start: 20080701
  9. AUGMENTIN - SLOW RELEASE [Concomitant]
     Dosage: 1000/62.5
     Dates: start: 20080801
  10. CHEMOTHERAPEUTICS NOS [Concomitant]

REACTIONS (11)
  - ANXIETY [None]
  - BONE DISORDER [None]
  - DECREASED INTEREST [None]
  - DEFORMITY [None]
  - DISCOMFORT [None]
  - DYSPEPSIA [None]
  - EMOTIONAL DISTRESS [None]
  - INJURY [None]
  - LIFE EXPECTANCY SHORTENED [None]
  - OSTEONECROSIS [None]
  - PAIN [None]
